FAERS Safety Report 6119044-7 (Version None)
Quarter: 2009Q1

REPORT INFORMATION
  Report Type: 
  Country: None (occurrence: None)
  Receive Date: 20090316
  Receipt Date: 20090306
  Transmission Date: 20090719
  Serious: Yes (Other)
  Sender: FDA-Public Use
  Company Number: PT-AMGEN-UK334752

PATIENT
  Sex: Female
  Weight: 61 kg

DRUGS (9)
  1. NEULASTA [Suspect]
     Indication: DRUG USE FOR UNKNOWN INDICATION
     Route: 058
     Dates: start: 20090206
  2. CYCLOPHOSPHAMIDE [Concomitant]
     Route: 065
     Dates: start: 20090205
  3. DOCETAXEL [Concomitant]
     Route: 065
     Dates: start: 20090205
  4. DOXORUBICIN HCL [Concomitant]
     Route: 065
     Dates: start: 20090205
  5. LEXOTAN [Concomitant]
     Route: 065
  6. GRANOCYTE [Concomitant]
     Route: 065
  7. DEXAMETHASONE [Concomitant]
     Route: 042
     Dates: start: 20090205
  8. RANITIDINE [Concomitant]
     Route: 048
     Dates: start: 20090205
  9. METOCLOPRAMIDE HYDROCHLORIDE [Concomitant]
     Route: 042

REACTIONS (2)
  - DRUG INEFFECTIVE [None]
  - FEBRILE NEUTROPENIA [None]
